FAERS Safety Report 5792359-8 (Version None)
Quarter: 2008Q2

REPORT INFORMATION
  Report Type: 
  Country: None (occurrence: None)
  Receive Date: 20080625
  Receipt Date: 20080506
  Transmission Date: 20081010
  Serious: Yes (Hospitalization, Other)
  Sender: FDA-Public Use
  Company Number: US-WYE-H03948208

PATIENT
  Age: 76 Year
  Sex: Male
  Weight: 87 kg

DRUGS (9)
  1. TORISEL [Suspect]
     Indication: RENAL CELL CARCINOMA
     Dosage: 25 MG 1X PER 1 WK, INTRAVENOUS
     Route: 042
     Dates: start: 20080301, end: 20080301
  2. FERROUS SULFATE TAB [Concomitant]
  3. GLYBURIDE [Concomitant]
  4. HYDROCHLOROTHIAZIDE [Concomitant]
  5. PREVACID [Concomitant]
  6. SIMVASTATIN [Concomitant]
  7. SYNTHROID [Concomitant]
  8. ZOMETA [Concomitant]
  9. TERAZOSIN HCL [Concomitant]

REACTIONS (1)
  - ANAPHYLACTIC REACTION [None]
